FAERS Safety Report 20586436 (Version 2)
Quarter: 2022Q1

REPORT INFORMATION
  Report Type: Spontaneous
  Country: US (occurrence: None)
  Receive Date: 20220313
  Receipt Date: 20220330
  Transmission Date: 20220424
  Serious: No
  Sender: FDA-Public Use
  Company Number: 2022A107952

PATIENT
  Age: 78 Year
  Sex: Male
  Weight: 101.2 kg

DRUGS (1)
  1. BYDUREON BCISE [Suspect]
     Active Substance: EXENATIDE
     Indication: Type 2 diabetes mellitus
     Route: 058
     Dates: start: 20180809, end: 20220305

REACTIONS (6)
  - Eating disorder [Unknown]
  - Early satiety [Unknown]
  - Weight decreased [Unknown]
  - Decreased appetite [Unknown]
  - Incorrect dose administered by device [Unknown]
  - Device delivery system issue [Unknown]
